FAERS Safety Report 18924057 (Version 2)
Quarter: 2021Q2

REPORT INFORMATION
  Report Type: Spontaneous
  Country: US (occurrence: US)
  Receive Date: 20210222
  Receipt Date: 20210416
  Transmission Date: 20210717
  Serious: No
  Sender: FDA-Public Use
  Company Number: US-ASTRAZENECA-2021A032264

PATIENT
  Age: 20628 Day
  Sex: Male
  Weight: 68 kg

DRUGS (5)
  1. ROSUVASTATIN. [Suspect]
     Active Substance: ROSUVASTATIN
     Indication: BLOOD CHOLESTEROL ABNORMAL
     Dosage: 10 TO 12 YEARS AGO
     Route: 048
  2. FARXIGA [Suspect]
     Active Substance: DAPAGLIFLOZIN PROPANEDIOL
     Indication: TYPE 2 DIABETES MELLITUS
     Dosage: STARTING 10 TO 12 YEARS AGO
     Route: 048
  3. METFORMIN [Concomitant]
     Active Substance: METFORMIN HYDROCHLORIDE
     Indication: TYPE 2 DIABETES MELLITUS
     Dosage: 10 TO 12 YEARS
     Route: 048
  4. LISINOPRILL [Concomitant]
     Indication: BLOOD PRESSURE ABNORMAL
     Dosage: 20/25MG
     Route: 048
  5. BYDUREON BCISE [Suspect]
     Active Substance: EXENATIDE
     Indication: TYPE 2 DIABETES MELLITUS
     Dosage: STARTING ABOUT 6 MONTHS AGO
     Route: 058

REACTIONS (8)
  - Device use issue [Recovered/Resolved]
  - Injection site haemorrhage [Unknown]
  - Product use issue [Unknown]
  - Incorrect dose administered by device [Unknown]
  - Injection site urticaria [Not Recovered/Not Resolved]
  - Injection site pain [Unknown]
  - Type 2 diabetes mellitus [Unknown]
  - Needle issue [Unknown]

NARRATIVE: CASE EVENT DATE: 20210202
